FAERS Safety Report 15213801 (Version 1)
Quarter: 2018Q3

REPORT INFORMATION
  Report Type: Spontaneous
  Country: US (occurrence: US)
  Receive Date: 20180730
  Receipt Date: 20180730
  Transmission Date: 20181010
  Serious: No
  Sender: FDA-Public Use
  Company Number: US-SA-2018SA188655

PATIENT
  Sex: Male

DRUGS (2)
  1. LANTUS SOLOSTAR [Concomitant]
     Active Substance: INSULIN GLARGINE
     Dosage: 30 UNK
     Route: 065
  2. AMARYL [Suspect]
     Active Substance: GLIMEPIRIDE
     Indication: DIABETES MELLITUS
     Dosage: 3 MG, BID

REACTIONS (3)
  - Intentional product misuse [Unknown]
  - Drug interaction [Unknown]
  - Confusional state [Unknown]
